FAERS Safety Report 7828353-2 (Version None)
Quarter: 2011Q4

REPORT INFORMATION
  Report Type: 
  Country: None (occurrence: None)
  Receive Date: 20111020
  Receipt Date: 20111013
  Transmission Date: 20120403
  Serious: Yes (Other)
  Sender: FDA-Public Use
  Company Number: DE-UCBSA-040897

PATIENT
  Sex: Female
  Weight: 43 kg

DRUGS (6)
  1. L-DOPA RET [Concomitant]
     Indication: RESTLESS LEGS SYNDROME
     Dosage: FOR AT LEAST 1 AND 1/2 YEARS
     Route: 048
  2. NIFEDIPINE [Concomitant]
     Dosage: DAILY DOSE 2*5 DROPS
     Route: 048
  3. IRBESARTAN [Concomitant]
     Dosage: SINGLE DOSE:150, DAILY DOSE:150
     Route: 048
  4. NEUPRO [Suspect]
     Indication: RESTLESS LEGS SYNDROME
     Route: 062
  5. NEUPRO [Suspect]
     Route: 062
     Dates: start: 20101125
  6. ASPIRIN [Concomitant]
     Dosage: SINGLE DOSE:100, DAILY DOSE:100

REACTIONS (3)
  - DYSPNOEA [None]
  - ANGINA PECTORIS [None]
  - PALPITATIONS [None]
